FAERS Safety Report 10048574 (Version 1)
Quarter: 2014Q1

REPORT INFORMATION
  Report Type: Spontaneous
  Country: JP (occurrence: JP)
  Receive Date: 20140331
  Receipt Date: 20140331
  Transmission Date: 20141002
  Serious: Yes (Other)
  Sender: FDA-Public Use
  Company Number: JP-PFIZER INC-2014085090

PATIENT
  Age: 76 Year
  Sex: Female

DRUGS (1)
  1. ZITHROMAC [Suspect]
     Indication: PNEUMONIA
     Dosage: 500 MG, DAILY
     Route: 048
     Dates: start: 20140324

REACTIONS (2)
  - Altered state of consciousness [Unknown]
  - Muscular weakness [Unknown]
